FAERS Safety Report 12637036 (Version 1)
Quarter: 2016Q3

REPORT INFORMATION
  Report Type: Report from Study
  Country: DE (occurrence: DE)
  Receive Date: 20160809
  Receipt Date: 20160809
  Transmission Date: 20161109
  Serious: Yes (Hospitalization, Other)
  Sender: FDA-Public Use
  Company Number: DE-ASTELLAS-2015US025900

PATIENT
  Age: 67 Year
  Sex: Male

DRUGS (2)
  1. GEMCITABINE [Suspect]
     Active Substance: GEMCITABINE\GEMCITABINE HYDROCHLORIDE
     Indication: PANCREATIC CARCINOMA
     Dosage: 120000 MG, ONCE WEEKLY (MOST RECENT DOSE PRIOR TO SAE: 17/JUL/2015)
     Route: 042
     Dates: start: 20150126
  2. ERLOTINIB [Suspect]
     Active Substance: ERLOTINIB
     Indication: PANCREATIC CARCINOMA
     Dosage: 100 MG, ONCE DAILY MOST RECENT DOSE 16/JUL/2015
     Route: 048
     Dates: start: 20150126

REACTIONS (3)
  - Bile duct stenosis [Recovered/Resolved]
  - Cholangitis [Recovered/Resolved]
  - Lymphocyte count decreased [Unknown]

NARRATIVE: CASE EVENT DATE: 20150717
